FAERS Safety Report 8676310 (Version 3)
Quarter: 2012Q4

REPORT INFORMATION
  Report Type: 
  Country: DK (occurrence: DK)
  Receive Date: 20120720
  Receipt Date: 20120911
  Transmission Date: 20130627
  Serious: Yes (Other)
  Sender: FDA-Public Use
  Company Number: PHHY2012DK060850

PATIENT
  Age: 57 Year
  Sex: Male
  Weight: 107 kg

DRUGS (14)
  1. SIMVASTATIN [Suspect]
     Indication: HYPERCHOLESTEROLAEMIA
     Dosage: 40 mg, QD
     Route: 048
     Dates: start: 20040101, end: 200903
  2. SIMVASTATIN [Suspect]
     Dosage: Styrke: 40 mg
     Route: 048
     Dates: start: 20040101, end: 200903
  3. AMLODIPIN [Concomitant]
     Indication: HYPERTENSION
     Dosage: 5 mg, QD
     Route: 048
  4. AMLODIPIN [Concomitant]
  5. FURIX [Concomitant]
     Indication: DIURETIC THERAPY
     Dosage: 40 mg, UNK
     Route: 048
  6. FURIX [Concomitant]
  7. KALEORID [Concomitant]
     Indication: MINERAL SUPPLEMENTATION
     Dosage: 750 mg, BID
     Route: 048
  8. KALEORID [Concomitant]
  9. MOXONIDINE [Concomitant]
     Indication: HYPERTENSION
     Dosage: 0.2 mg, UNK
     Route: 048
  10. LOSARTAN [Concomitant]
     Indication: HYPERTENSION
     Dosage: 100 mg, QD
     Route: 048
  11. CARVEDILOL [Concomitant]
     Indication: HYPERTENSION
     Dosage: 25 mg, QD
     Route: 048
  12. IBUMETIN [Concomitant]
     Indication: PAIN
     Dosage: 600 mg, TID
     Route: 048
  13. IBUMETIN [Concomitant]
     Dosage: Styrke: 600 mg
     Route: 048
  14. LANSOPRAZOLE [Concomitant]
     Indication: GASTROOESOPHAGEAL REFLUX DISEASE
     Dosage: 30 mg, QD
     Route: 048

REACTIONS (5)
  - Gout [Recovered/Resolved]
  - Arthralgia [Not Recovered/Not Resolved]
  - Myalgia [Not Recovered/Not Resolved]
  - Pain in extremity [Not Recovered/Not Resolved]
  - Oedema peripheral [Not Recovered/Not Resolved]
